FAERS Safety Report 16760943 (Version 6)
Quarter: 2020Q3

REPORT INFORMATION
  Report Type: Spontaneous
  Country: US (occurrence: US)
  Receive Date: 20190830
  Receipt Date: 20200806
  Transmission Date: 20201102
  Serious: No
  Sender: FDA-Public Use
  Company Number: US-LUNDBECK-DKLU3002239

PATIENT
  Age: 80 Year
  Sex: Female

DRUGS (2)
  1. NORTHERA [Suspect]
     Active Substance: DROXIDOPA
     Indication: PARKINSON^S DISEASE
     Dosage: SCHEDULE D
     Route: 048
     Dates: start: 20190731
  2. NORTHERA [Suspect]
     Active Substance: DROXIDOPA
     Indication: ORTHOSTATIC HYPOTENSION
     Dosage: TITRATION COMPLETE
     Route: 048
     Dates: start: 20190814

REACTIONS (5)
  - Hypertension [Unknown]
  - Blood pressure abnormal [Unknown]
  - Intentional underdose [Unknown]
  - Hypotension [Unknown]
  - Blood pressure increased [Unknown]

NARRATIVE: CASE EVENT DATE: 201906
